FAERS Safety Report 12977847 (Version 1)
Quarter: 2016Q4

REPORT INFORMATION
  Report Type: Spontaneous
  Country: CN (occurrence: CN)
  Receive Date: 20161128
  Receipt Date: 20161128
  Transmission Date: 20170207
  Serious: Yes (Hospitalization)
  Sender: FDA-Public Use
  Company Number: CN-JNJFOC-20161117988

PATIENT
  Age: 9 Month
  Sex: Male
  Weight: 11 kg

DRUGS (4)
  1. MOTRIN [Suspect]
     Active Substance: IBUPROFEN
     Indication: PYREXIA
     Route: 048
     Dates: start: 20161109, end: 20161114
  2. TYLENOL [Suspect]
     Active Substance: ACETAMINOPHEN
     Indication: PYREXIA
     Route: 048
     Dates: start: 20161112, end: 20161114
  3. MOTRIN [Suspect]
     Active Substance: IBUPROFEN
     Route: 048
  4. ERYTHROMYCIN. [Suspect]
     Active Substance: ERYTHROMYCIN
     Indication: PRODUCT USED FOR UNKNOWN INDICATION
     Route: 065

REACTIONS (5)
  - Liver injury [Recovering/Resolving]
  - Yellow skin [Recovering/Resolving]
  - Coma [Recovering/Resolving]
  - Self-medication [Recovering/Resolving]
  - Rash erythematous [Recovering/Resolving]

NARRATIVE: CASE EVENT DATE: 20161112
